FAERS Safety Report 9247431 (Version 2)
Quarter: 2013Q2

REPORT INFORMATION
  Report Type: Spontaneous
  Country: US (occurrence: US)
  Receive Date: 20130423
  Receipt Date: 20130423
  Transmission Date: 20140414
  Serious: No
  Sender: FDA-Public Use
  Company Number: US-MYLANLABS-2013S1006786

PATIENT
  Age: 60 Year
  Sex: Male
  Weight: 90.72 kg

DRUGS (2)
  1. ALFUZOSIN HYDROCHLORIDE EXTENDED-RELEASE TABLETS [Suspect]
     Indication: BENIGN PROSTATIC HYPERPLASIA
     Route: 048
     Dates: start: 2011
  2. FINASTERIDE [Concomitant]

REACTIONS (2)
  - Drug effect decreased [Not Recovered/Not Resolved]
  - Dysuria [Not Recovered/Not Resolved]
